FAERS Safety Report 5080685-X (Version None)
Quarter: 2006Q3

REPORT INFORMATION
  Report Type: 
  Country: None (occurrence: None)
  Receive Date: 20060809
  Receipt Date: 20060724
  Transmission Date: 20061208
  Serious: Yes (Hospitalization)
  Sender: FDA-Public Use
  Company Number: 2006071765

PATIENT
  Age: 73 Year
  Sex: Male
  Weight: 67 kg

DRUGS (7)
  1. SUTENT [Suspect]
     Indication: GASTROINTESTINAL STROMAL TUMOUR
     Dosage: 50 MG (50 MG, CYCLIC), ORAL
     Route: 048
     Dates: start: 20060421, end: 20060519
  2. CODEINE PHOSPHATE (CODEINE PHOSPHATE) [Concomitant]
  3. BECLOMETHASONE DIPROPIONATE [Concomitant]
  4. SALAMOL (SALBUTAMOL SULFATE) [Concomitant]
  5. FLUMETASONE PIVALATE (FLUMETASONE PIVALATE) [Concomitant]
  6. GENTAMICIN [Concomitant]
  7. NITROGLYCERIN [Concomitant]

REACTIONS (9)
  - CARDIAC FAILURE CONGESTIVE [None]
  - DYSPNOEA [None]
  - EAR INFECTION [None]
  - INFECTION [None]
  - MYOCARDIAL INFARCTION [None]
  - MYOCARDIAL ISCHAEMIA [None]
  - PULMONARY OEDEMA [None]
  - SEPSIS [None]
  - VENTRICULAR DYSFUNCTION [None]
